FAERS Safety Report 7206461-7 (Version None)
Quarter: 2010Q4

REPORT INFORMATION
  Report Type: 
  Country: None (occurrence: None)
  Receive Date: 20101221
  Receipt Date: 20101213
  Transmission Date: 20110411
  Serious: Yes (Hospitalization)
  Sender: FDA-Public Use
  Company Number: 779310

PATIENT
  Age: 74 Year
  Sex: Female
  Weight: 83.8 kg

DRUGS (5)
  1. OXALIPLATIN [Suspect]
     Indication: COLORECTAL CANCER
     Dosage: SEE IMAGE: INTRAVENOUS
     Route: 042
  2. OXALIPLATIN [Suspect]
     Indication: COLORECTAL CANCER
     Dosage: SEE IMAGE: INTRAVENOUS
     Route: 042
     Dates: start: 20100708
  3. DEXAMETHASONE [Concomitant]
  4. LANSOPRAZOLE [Concomitant]
  5. ONDANSETRON [Concomitant]

REACTIONS (5)
  - DYSPHONIA [None]
  - DYSPNOEA [None]
  - INFUSION RELATED REACTION [None]
  - PARAESTHESIA [None]
  - VISION BLURRED [None]
